FAERS Safety Report 17734401 (Version 4)
Quarter: 2020Q2

REPORT INFORMATION
  Report Type: Report from Study
  Country: SE (occurrence: SE)
  Receive Date: 20200501
  Receipt Date: 20200624
  Transmission Date: 20200714
  Serious: Yes (Hospitalization, Other)
  Sender: FDA-Public Use
  Company Number: SE-PFIZER INC-2020171572

PATIENT
  Sex: Male
  Weight: 95 kg

DRUGS (8)
  1. ETOPOSIDE. [Suspect]
     Active Substance: ETOPOSIDE
     Indication: NON-HODGKIN^S LYMPHOMA
     Dosage: 219 MG, 4X/DAY
     Route: 042
     Dates: start: 20200316, end: 20200318
  2. CYTARABINE. [Suspect]
     Active Substance: CYTARABINE
     Indication: NON-HODGKIN^S LYMPHOMA
     Dosage: 430 MG, 1X/DAY(215 MILLIGRAM, EVERY 12H)
     Route: 042
     Dates: start: 20200501, end: 20200504
  3. CARMUSTINE. [Suspect]
     Active Substance: CARMUSTINE
     Indication: NON-HODGKIN^S LYMPHOMA
     Dosage: 200 MG, 1X/DAY
     Route: 042
     Dates: start: 20200429, end: 20200429
  4. ETOPOSIDE. [Suspect]
     Active Substance: ETOPOSIDE
     Dosage: 400 MG, 1X/DAY (100 MILLIGRAM, FOUR TIMES EACH DAY)
     Route: 042
     Dates: start: 20200501, end: 20200504
  5. CARBOPLATIN. [Suspect]
     Active Substance: CARBOPLATIN
     Indication: NON-HODGKIN^S LYMPHOMA
     Dosage: 575 MG, 1X/DAY
     Route: 042
     Dates: start: 20200317, end: 20200317
  6. RITUXIMAB. [Suspect]
     Active Substance: RITUXIMAB
     Indication: NON-HODGKIN^S LYMPHOMA
     Dosage: 820 MG, 1X/DAY
     Route: 042
     Dates: start: 20200318, end: 20200318
  7. IFOSFAMIDE. [Suspect]
     Active Substance: IFOSFAMIDE
     Indication: NON-HODGKIN^S LYMPHOMA
     Dosage: 10950 MG, 1X/DAY
     Route: 042
     Dates: start: 20200317, end: 20200318
  8. MELPHALAN. [Suspect]
     Active Substance: MELPHALAN
     Indication: NON-HODGKIN^S LYMPHOMA
     Dosage: 45 MG, 1X/DAY
     Route: 042
     Dates: start: 20200430, end: 20200430

REACTIONS (3)
  - Pyrexia [Recovered/Resolved]
  - Febrile neutropenia [Recovered/Resolved with Sequelae]
  - Femur fracture [Recovered/Resolved]

NARRATIVE: CASE EVENT DATE: 20200330
